FAERS Safety Report 16900233 (Version 1)
Quarter: 2019Q4

REPORT INFORMATION
  Report Type: Spontaneous
  Country: US (occurrence: US)
  Receive Date: 20191009
  Receipt Date: 20191009
  Transmission Date: 20200122
  Serious: No
  Sender: FDA-Public Use
  Company Number: US-TEVA-2019-US-1118029

PATIENT
  Sex: Female

DRUGS (2)
  1. OMEGA-3-ACID ETHYL ESTERS CAPSULES CAPSULE [Suspect]
     Active Substance: OMEGA-3-ACID ETHYL ESTERS
     Indication: BLOOD TRIGLYCERIDES INCREASED
     Route: 065
     Dates: start: 201904
  2. CRESTOR [Concomitant]
     Active Substance: ROSUVASTATIN CALCIUM
     Indication: BLOOD TRIGLYCERIDES INCREASED
     Dates: end: 201907

REACTIONS (5)
  - Blood pressure increased [Unknown]
  - Blood glucose increased [Unknown]
  - Pain [Unknown]
  - Low density lipoprotein increased [Unknown]
  - Neck pain [Unknown]

NARRATIVE: CASE EVENT DATE: 20190725
